FAERS Safety Report 8871974 (Version 5)
Quarter: 2013Q1

REPORT INFORMATION
  Report Type: Spontaneous
  Country: DK (occurrence: DK)
  Receive Date: 20121029
  Receipt Date: 20130108
  Transmission Date: 20140127
  Serious: Yes (Other)
  Sender: FDA-Public Use
  Company Number: PHHY2012DK095001

PATIENT
  Age: 26 Year
  Sex: Female

DRUGS (4)
  1. METHYLPHENIDATE [Suspect]
     Dosage: 10 MG, UNK
     Dates: start: 20091022
  2. METHYLPHENIDATE [Interacting]
     Dosage: DOSAGE FORM: UNKNOWN
     Route: 065
     Dates: start: 20091022
  3. CONCERTA [Interacting]
     Indication: ATTENTION DEFICIT/HYPERACTIVITY DISORDER
     Dosage: 36 MG, UNK
     Route: 048
     Dates: start: 20100510
  4. ALCOHOL [Interacting]

REACTIONS (3)
  - Swelling [Unknown]
  - Arthralgia [Unknown]
  - Drug interaction [Unknown]
